FAERS Safety Report 6015121-X (Version None)
Quarter: 2008Q4

REPORT INFORMATION
  Report Type: 
  Country: None (occurrence: None)
  Receive Date: 20081222
  Receipt Date: 20081121
  Transmission Date: 20090506
  Serious: No
  Sender: FDA-Public Use
  Company Number: US-BAYER-200819840NA

PATIENT
  Age: 60 Year
  Sex: Male

DRUGS (4)
  1. AVELOX [Suspect]
     Indication: INFECTION
     Route: 048
     Dates: start: 20080906, end: 20080915
  2. METHOTREXATE [Concomitant]
     Route: 048
  3. NEXIUM [Concomitant]
     Dosage: TOTAL DAILY DOSE: 40 MG
     Route: 048
  4. FOLIC ACID [Concomitant]
     Dosage: TOTAL DAILY DOSE: 1 MG
     Route: 048

REACTIONS (1)
  - PRE-EXISTING CONDITION IMPROVED [None]
